FAERS Safety Report 19656432 (Version 1)
Quarter: 2021Q3

REPORT INFORMATION
  Report Type: Spontaneous
  Country: DE (occurrence: DE)
  Receive Date: 20210804
  Receipt Date: 20210804
  Transmission Date: 20211014
  Serious: Yes (Hospitalization)
  Sender: FDA-Public Use
  Company Number: DE-MYLANLABS-2021M1047279

PATIENT
  Age: 12 Year
  Sex: Male
  Weight: 66 kg

DRUGS (5)
  1. SINUPRET                           /07526101/ [Suspect]
     Active Substance: DIETARY SUPPLEMENT\HERBALS
     Indication: TONSILLITIS
     Dosage: UNK
     Dates: start: 20190706, end: 20190711
  2. EUBIOTIC [BIFIDOBACTERIUM ANIMALIS LACTIS\LACTOBACILLUS ACIDOPHILUS] [Suspect]
     Active Substance: BIFIDOBACTERIUM ANIMALIS LACTIS\LACTOBACILLUS ACIDOPHILUS
     Indication: TONSILLITIS
     Dosage: UNK
     Dates: start: 20190706, end: 20190711
  3. NYSTATIN. [Suspect]
     Active Substance: NYSTATIN
     Indication: TONSILLITIS
     Dosage: UNK
     Dates: start: 20190706, end: 20190711
  4. FLUTICASONE PROPIONATE/SALMETEROL XINAFOATE [Suspect]
     Active Substance: FLUTICASONE PROPIONATE\SALMETEROL XINAFOATE
     Indication: TONSILLITIS
     Dosage: UNK
     Dates: start: 20190706, end: 20190711
  5. AMOXICILLIN,CLAVULANIC ACID MYLAN [Suspect]
     Active Substance: AMOXICILLIN\CLAVULANIC ACID
     Indication: TONSILLITIS
     Dosage: UNK
     Dates: start: 20190706, end: 20190711

REACTIONS (3)
  - Vomiting [Recovering/Resolving]
  - Weight decreased [Recovering/Resolving]
  - Diarrhoea [Recovering/Resolving]

NARRATIVE: CASE EVENT DATE: 20190709
